FAERS Safety Report 8263109-0 (Version None)
Quarter: 2012Q1

REPORT INFORMATION
  Report Type: 
  Country: None (occurrence: None)
  Receive Date: 20120327
  Receipt Date: 20090210
  Transmission Date: 20120608
  Serious: Yes (Life-Threatening, Hospitalization)
  Sender: FDA-Public Use
  Company Number: PHEH2008US08979

PATIENT
  Age: 49 Year
  Sex: Female
  Weight: 92.5 kg

DRUGS (6)
  1. METHOTREXATE [Concomitant]
  2. GLEEVEC [Suspect]
     Indication: LANGERHANS' CELL HISTIOCYTOSIS
     Dosage: 400 MG, QD, ORAL; 100 MG, QD, ORAL
     Route: 048
     Dates: start: 20080901
  3. GLEEVEC [Suspect]
     Indication: LANGERHANS' CELL HISTIOCYTOSIS
     Dosage: 400 MG, QD, ORAL; 100 MG, QD, ORAL
     Route: 048
     Dates: start: 20080701, end: 20080901
  4. LEVOTHYROXINE SODIUM [Concomitant]
  5. DESMOPRESSIN ACETATE [Concomitant]
  6. ESCITALOPRAM [Concomitant]

REACTIONS (3)
  - PERICARDIAL EXCISION [None]
  - PERICARDIAL EFFUSION [None]
  - GENERALISED OEDEMA [None]
